FAERS Safety Report 9013834 (Version 1)
Quarter: 2013Q1

REPORT INFORMATION
  Report Type: Spontaneous
  Country: US (occurrence: US)
  Receive Date: 20130115
  Receipt Date: 20130115
  Transmission Date: 20140127
  Serious: Yes (Hospitalization)
  Sender: FDA-Public Use
  Company Number: US-BAYER-2013-004501

PATIENT
  Age: 52 Year
  Sex: Female
  Weight: 55.78 kg

DRUGS (6)
  1. YASMIN [Suspect]
  2. YAZ [Suspect]
  3. SYNTHROID [Concomitant]
     Dosage: 0.125 MCG
  4. CALCIUM [Concomitant]
     Dosage: DAILY
  5. MULTIVITAMIN [Concomitant]
     Dosage: DAILY
  6. IRON SUPPLEMENTATION [Concomitant]

REACTIONS (1)
  - Thrombophlebitis superficial [None]
